FAERS Safety Report 7392371-1 (Version None)
Quarter: 2011Q2

REPORT INFORMATION
  Report Type: 
  Country: None (occurrence: None)
  Receive Date: 20110404
  Receipt Date: 20110329
  Transmission Date: 20111010
  Serious: Yes (Death, Hospitalization)
  Sender: FDA-Public Use
  Company Number: US-BRISTOL-MYERS SQUIBB COMPANY-15005747

PATIENT
  Age: 84 Year
  Sex: Female

DRUGS (11)
  1. METFORMIN HCL [Concomitant]
  2. COZAAR [Concomitant]
  3. ACETAMINOPHEN [Concomitant]
  4. DARVON-N [Concomitant]
  5. LOPID [Concomitant]
  6. VITAMIN B-12 [Concomitant]
  7. LANTUS [Concomitant]
  8. ONGLYZA [Suspect]
     Indication: TYPE 2 DIABETES MELLITUS
     Dosage: DOSAGE: APPROXIMATELY 1 MONTH.
     Route: 048
     Dates: start: 20100121, end: 20100227
  9. ASPIRIN [Concomitant]
  10. ZOLOFT [Concomitant]
  11. LEVOTHYROXINE [Concomitant]

REACTIONS (2)
  - PANCREATIC CARCINOMA [None]
  - PANCREATITIS [None]
